FAERS Safety Report 9960427 (Version 1)
Quarter: 2014Q1

REPORT INFORMATION
  Report Type: Report from Study
  Country: US (occurrence: US)
  Receive Date: 20140305
  Receipt Date: 20140305
  Transmission Date: 20141002
  Serious: No
  Sender: FDA-Public Use
  Company Number: US-ABBVIE-13P-163-1110386-00

PATIENT
  Age: 27 Year
  Sex: Male

DRUGS (2)
  1. HUMIRA [Suspect]
     Indication: COLITIS ULCERATIVE
     Dates: start: 20130429
  2. SULFASALAZINE [Concomitant]
     Indication: COLITIS ULCERATIVE
     Dosage: 500 MG 3 TABLETS TWICE DAILY
     Route: 048

REACTIONS (5)
  - Device malfunction [Recovering/Resolving]
  - Incorrect dose administered [Recovering/Resolving]
  - Injection site urticaria [Recovering/Resolving]
  - Injection site haemorrhage [Recovered/Resolved]
  - Injection site erythema [Recovering/Resolving]
